FAERS Safety Report 23618775 (Version 5)
Quarter: 2024Q4

REPORT INFORMATION
  Report Type: Spontaneous
  Country: US (occurrence: US)
  Receive Date: 20240311
  Receipt Date: 20241219
  Transmission Date: 20250115
  Serious: Yes (Other)
  Sender: PFIZER
  Company Number: US-PFIZER INC-PV202300189648

PATIENT
  Age: 78 Year
  Sex: Male
  Weight: 78.912 kg

DRUGS (6)
  1. IBRANCE [Suspect]
     Active Substance: PALBOCICLIB
     Indication: Invasive ductal breast carcinoma
     Dosage: 75 MG, CYCLIC, 1 DAILY FOR 21 DAYS THEN OFF FOR 14 DAYS OF A 35 DAY CYCLE
     Route: 048
     Dates: start: 20220707
  2. IBRANCE [Suspect]
     Active Substance: PALBOCICLIB
     Indication: Breast cancer male
     Dosage: 75 MG, CYCLIC, TAKE 1 TABLET BY MOUTH DAILY FOR 21 DAYS THEN OFF FOR 14 DAYS
     Route: 048
  3. ARIMIDEX [Concomitant]
     Active Substance: ANASTROZOLE
     Indication: Invasive ductal breast carcinoma
     Dosage: UNK
     Dates: start: 20220707
  4. ARIMIDEX [Concomitant]
     Active Substance: ANASTROZOLE
     Indication: Breast cancer male
  5. ELIGARD [Concomitant]
     Active Substance: LEUPROLIDE ACETATE
     Indication: Invasive ductal breast carcinoma
     Dosage: UNK
     Dates: start: 20220707
  6. ELIGARD [Concomitant]
     Active Substance: LEUPROLIDE ACETATE
     Indication: Breast cancer male

REACTIONS (3)
  - Deafness [Unknown]
  - Off label use [Unknown]
  - Product use issue [Unknown]

NARRATIVE: CASE EVENT DATE: 20220707
